FAERS Safety Report 6070650-8 (Version None)
Quarter: 2009Q1

REPORT INFORMATION
  Report Type: 
  Country: None (occurrence: None)
  Receive Date: 20090209
  Receipt Date: 20090209
  Transmission Date: 20090719
  Serious: Yes (Hospitalization)
  Sender: FDA-Public Use
  Company Number: US-PFIZER INC-2008158862

PATIENT

DRUGS (1)
  1. LYRICA [Suspect]

REACTIONS (2)
  - INTENTIONAL DRUG MISUSE [None]
  - SUICIDAL BEHAVIOUR [None]
